FAERS Safety Report 10150165 (Version 1)
Quarter: 2014Q2

REPORT INFORMATION
  Report Type: Spontaneous
  Country: IN (occurrence: IN)
  Receive Date: 20140502
  Receipt Date: 20140502
  Transmission Date: 20141212
  Serious: Yes (Hospitalization)
  Sender: FDA-Public Use
  Company Number: IN-GLAXOSMITHKLINE-B0990516A

PATIENT
  Age: 60 Year
  Sex: Male

DRUGS (1)
  1. RANITIDINE [Suspect]
     Indication: EPIGASTRIC DISCOMFORT
     Route: 065

REACTIONS (6)
  - Anaphylactic reaction [Recovering/Resolving]
  - Somnolence [Unknown]
  - Rash [Unknown]
  - Face oedema [Unknown]
  - Urticaria [Unknown]
  - Blood immunoglobulin E increased [Unknown]
